FAERS Safety Report 8199279-2 (Version None)
Quarter: 2012Q1

REPORT INFORMATION
  Report Type: 
  Country: None (occurrence: None)
  Receive Date: 20120309
  Receipt Date: 20120306
  Transmission Date: 20120608
  Serious: No
  Sender: FDA-Public Use
  Company Number: US-BAYER-2012-022950

PATIENT
  Age: 9 Year
  Sex: Female

DRUGS (1)
  1. MAGNEVIST [Suspect]
     Indication: IMAGING PROCEDURE
     Dosage: 5 ML, ONCE
     Route: 042
     Dates: start: 20120306, end: 20120306

REACTIONS (1)
  - VOMITING [None]
